FAERS Safety Report 5274240-6 (Version None)
Quarter: 2007Q1

REPORT INFORMATION
  Report Type: 
  Country: None (occurrence: None)
  Receive Date: 20070323
  Receipt Date: 20070313
  Transmission Date: 20070707
  Serious: Yes (Other)
  Sender: FDA-Public Use
  Company Number: US-JNJFOC-20070303480

PATIENT
  Sex: Female
  Weight: 107.96 kg

DRUGS (4)
  1. DURAGESIC-100 [Suspect]
     Route: 062
  2. DURAGESIC-100 [Suspect]
     Route: 062
  3. DURAGESIC-100 [Suspect]
     Indication: SPINAL COMPRESSION FRACTURE
     Route: 062
  4. FENTANYL TRANSDERMAL SYSTEM [Suspect]
     Indication: SPINAL COMPRESSION FRACTURE
     Route: 062

REACTIONS (2)
  - BLISTER [None]
  - DIABETES MELLITUS NON-INSULIN-DEPENDENT [None]
